FAERS Safety Report 15627826 (Version 2)
Quarter: 2019Q1

REPORT INFORMATION
  Report Type: Report from Study
  Country: MX (occurrence: MX)
  Receive Date: 20181116
  Receipt Date: 20190130
  Transmission Date: 20190417
  Serious: Yes (Other)
  Sender: FDA-Public Use
  Company Number: PHHY2018MX156459

PATIENT
  Age: 1 Year
  Sex: Female
  Weight: 13 kg

DRUGS (1)
  1. TRILEPTAL [Suspect]
     Active Substance: OXCARBAZEPINE
     Indication: CEREBRAL DISORDER
     Dosage: 2.5 ML, QHS
     Route: 048
     Dates: start: 20180622

REACTIONS (6)
  - Product use in unapproved indication [Unknown]
  - Dyspnoea [Unknown]
  - Eye movement disorder [Unknown]
  - Inappropriate schedule of product administration [Unknown]
  - Drug ineffective [Unknown]
  - Seizure [Unknown]

NARRATIVE: CASE EVENT DATE: 201806
